FAERS Safety Report 9485292 (Version 2)
Quarter: 2013Q3

REPORT INFORMATION
  Report Type: Spontaneous
  Country: JP (occurrence: JP)
  Receive Date: 20130828
  Receipt Date: 20130910
  Transmission Date: 20140515
  Serious: Yes (Other)
  Sender: FDA-Public Use
  Company Number: JP-PFIZER INC-2013242756

PATIENT
  Age: 82 Year
  Sex: Male
  Weight: 60 kg

DRUGS (3)
  1. UNASYN-S [Suspect]
     Indication: PNEUMONIA
     Dosage: 6 G, 1X/DAY
     Route: 042
     Dates: start: 20121015, end: 20121020
  2. WARFARIN POTASSIUM [Concomitant]
     Indication: ATRIAL FIBRILLATION
     Dosage: 1.5 MG, 1X/DAY
     Route: 048
     Dates: start: 20121015, end: 20121020
  3. LOSARTAN POTASSIUM [Concomitant]
     Indication: HYPERTENSION
     Dosage: 50 MG, 1X/DAY
     Route: 048
     Dates: start: 20121015, end: 20121020

REACTIONS (2)
  - Pneumonia [Recovered/Resolved]
  - Pathogen resistance [Recovered/Resolved]
